FAERS Safety Report 8995333 (Version 1)
Quarter: 2013Q1

REPORT INFORMATION
  Report Type: Spontaneous
  Country: CA (occurrence: CA)
  Receive Date: 20130102
  Receipt Date: 20130102
  Transmission Date: 20140127
  Serious: Yes (Hospitalization)
  Sender: FDA-Public Use
  Company Number: CA-ASTRAZENECA-2012SE95419

PATIENT
  Age: 59 Year
  Sex: Female

DRUGS (4)
  1. QUETIAPINE [Suspect]
     Indication: HALLUCINATION
     Route: 048
  2. CARBIDOPA [Concomitant]
     Indication: PARKINSON^S DISEASE
  3. LEVODOPA [Concomitant]
     Indication: PARKINSON^S DISEASE
  4. OXAZEPAM [Concomitant]

REACTIONS (4)
  - Drug-induced liver injury [Recovered/Resolved]
  - Encephalopathy [Recovered/Resolved]
  - Ascites [Recovered/Resolved]
  - Splenomegaly [Recovered/Resolved]
